FAERS Safety Report 11189633 (Version 6)
Quarter: 2019Q3

REPORT INFORMATION
  Report Type: Spontaneous
  Country: US (occurrence: US)
  Receive Date: 20150615
  Receipt Date: 20190717
  Transmission Date: 20191004
  Serious: Yes (Hospitalization, Other)
  Sender: FDA-Public Use
  Company Number: US-DSJP-DSU-2015-103258

PATIENT

DRUGS (5)
  1. BENICAR [Suspect]
     Active Substance: OLMESARTAN MEDOXOMIL
     Dosage: 40 MG, QD
     Route: 048
  2. BENICAR [Suspect]
     Active Substance: OLMESARTAN MEDOXOMIL
     Indication: HYPERTENSION
     Dosage: 20 MG
     Dates: start: 2002, end: 20130614
  3. BENICAR [Suspect]
     Active Substance: OLMESARTAN MEDOXOMIL
     Dosage: 40 MG, BID
     Route: 048
     Dates: start: 2002, end: 20130614
  4. HYDROCHLOROTHIAZIDE. [Concomitant]
     Active Substance: HYDROCHLOROTHIAZIDE
     Indication: PRODUCT USED FOR UNKNOWN INDICATION
     Dosage: 25 MG, UNK
  5. BENICAR [Suspect]
     Active Substance: OLMESARTAN MEDOXOMIL
     Dosage: UNK
     Dates: start: 200608, end: 20130614

REACTIONS (14)
  - Gastric ulcer [Unknown]
  - Anorectal disorder [Not Recovered/Not Resolved]
  - Duodenal ulcer [Unknown]
  - Anxiety disorder [Not Recovered/Not Resolved]
  - Colitis ulcerative [Unknown]
  - Sprue-like enteropathy [Recovered/Resolved]
  - Depression [Unknown]
  - Campylobacter test positive [Recovered/Resolved]
  - Lactose intolerance [Unknown]
  - Gastrointestinal bacterial overgrowth [Unknown]
  - Acute kidney injury [Unknown]
  - Large intestine polyp [Unknown]
  - Dizziness [Unknown]
  - Peptic ulcer [Unknown]

NARRATIVE: CASE EVENT DATE: 20081209
